FAERS Safety Report 13067986 (Version 3)
Quarter: 2017Q1

REPORT INFORMATION
  Report Type: Report from Study
  Country: GB (occurrence: GB)
  Receive Date: 20161228
  Receipt Date: 20170202
  Transmission Date: 20170428
  Serious: Yes (Other)
  Sender: FDA-Public Use
  Company Number: GB-ASTRAZENECA-2016SF36917

PATIENT
  Age: 29853 Day
  Sex: Female

DRUGS (4)
  1. CALCITRIOL. [Concomitant]
     Active Substance: CALCITRIOL
     Dates: start: 20120326, end: 20161215
  2. ZD6474 CODE NOT BROKEN [Suspect]
     Active Substance: VANDETANIB
     Indication: BREAST CANCER METASTATIC
     Route: 048
     Dates: start: 20160406, end: 20161215
  3. WARFARIN [Concomitant]
     Active Substance: WARFARIN
     Dates: start: 20120326, end: 20161215
  4. FULVESTRANT [Suspect]
     Active Substance: FULVESTRANT
     Indication: BREAST CANCER METASTATIC
     Dosage: 500 MG
     Route: 030
     Dates: start: 20160416, end: 20161215

REACTIONS (1)
  - Electrocardiogram QT prolonged [Recovered/Resolved]

NARRATIVE: CASE EVENT DATE: 20161215
